FAERS Safety Report 23194847 (Version 1)
Quarter: 2023Q4

REPORT INFORMATION
  Report Type: Spontaneous
  Country: TW (occurrence: TW)
  Receive Date: 20231117
  Receipt Date: 20231117
  Transmission Date: 20240110
  Serious: Yes (Other)
  Sender: FDA-Public Use
  Company Number: TW-MTPC-MTPC2023-0027180

PATIENT
  Age: 56 Year
  Sex: Male
  Weight: 81 kg

DRUGS (1)
  1. REMICADE [Suspect]
     Active Substance: INFLIXIMAB
     Indication: Crohn^s disease
     Dosage: 5MG/KG/ 3 STARTER DOSES AT WEEKS 0, 2, AND 6
     Route: 041
     Dates: start: 20231012, end: 20231109

REACTIONS (6)
  - Choking sensation [Unknown]
  - Palpitations [Unknown]
  - Feeling hot [Unknown]
  - Swelling [Unknown]
  - Erythema [Unknown]
  - Hypersensitivity [Unknown]

NARRATIVE: CASE EVENT DATE: 20231109
